FAERS Safety Report 6913277-5 (Version None)
Quarter: 2010Q3

REPORT INFORMATION
  Report Type: 
  Country: None (occurrence: None)
  Receive Date: 20100809
  Receipt Date: 20100730
  Transmission Date: 20110219
  Serious: Yes (Other)
  Sender: FDA-Public Use
  Company Number: US-BIOGENIDEC-2010BI026894

PATIENT
  Age: 53 Year
  Sex: Female
  Weight: 86 kg

DRUGS (4)
  1. AVONEX [Suspect]
     Indication: MULTIPLE SCLEROSIS
     Route: 030
     Dates: start: 19981201
  2. AVONEX [Suspect]
     Route: 030
     Dates: end: 20041221
  3. AVAPRO [Concomitant]
     Indication: HYPERTENSION
  4. CARDIZEM [Concomitant]
     Indication: HYPERTENSION

REACTIONS (1)
  - MALIGNANT MELANOMA IN SITU [None]
